FAERS Safety Report 20458580 (Version 3)
Quarter: 2022Q1

REPORT INFORMATION
  Report Type: Spontaneous
  Country: CN (occurrence: CN)
  Receive Date: 20220211
  Receipt Date: 20220331
  Transmission Date: 20220423
  Serious: Yes (Hospitalization)
  Sender: FDA-Public Use
  Company Number: CN-NOVOPROD-888324

PATIENT
  Age: 11 Year
  Sex: Male
  Weight: 36 kg

DRUGS (2)
  1. NORDITROPIN [Suspect]
     Active Substance: SOMATROPIN
     Indication: Short stature
     Dosage: 2 MG, QD
     Route: 058
     Dates: start: 20220126, end: 20220201
  2. NORDITROPIN [Suspect]
     Active Substance: SOMATROPIN
     Dosage: UNK (RESTARTED)
     Route: 058
     Dates: start: 20220210

REACTIONS (2)
  - Bacterial infection [Recovered/Resolved]
  - Product use in unapproved indication [Unknown]

NARRATIVE: CASE EVENT DATE: 20220129
